FAERS Safety Report 5751863-9 (Version None)
Quarter: 2008Q2

REPORT INFORMATION
  Report Type: 
  Country: None (occurrence: None)
  Receive Date: 20080527
  Receipt Date: 20080508
  Transmission Date: 20081010
  Serious: Yes (Hospitalization)
  Sender: FDA-Public Use
  Company Number: 2008AL004607

PATIENT
  Age: 60 Year
  Sex: Male
  Weight: 97.0698 kg

DRUGS (3)
  1. DIGOXIN [Suspect]
     Indication: ARRHYTHMIA
  2. DIGOXIN [Suspect]
     Indication: CARDIAC FAILURE CONGESTIVE
  3. NON-SPECIFIED HEART AND LUNG MEDICATIONS [Concomitant]

REACTIONS (1)
  - PHARMACEUTICAL PRODUCT COMPLAINT [None]
